FAERS Safety Report 20453708 (Version 1)
Quarter: 2022Q1

REPORT INFORMATION
  Report Type: Spontaneous
  Country: US (occurrence: None)
  Receive Date: 20220210
  Receipt Date: 20220210
  Transmission Date: 20220423
  Serious: No
  Sender: FDA-Public Use
  Company Number: 2022A065240

PATIENT
  Age: 25285 Day

DRUGS (1)
  1. DALIRESP [Suspect]
     Active Substance: ROFLUMILAST
     Dosage: 500 MG, UNKNOWN500.0MG UNKNOWN
     Route: 048
     Dates: end: 20220207

REACTIONS (3)
  - Feeling abnormal [Unknown]
  - Product distribution issue [Unknown]
  - Product dose omission issue [Unknown]

NARRATIVE: CASE EVENT DATE: 20220208
